FAERS Safety Report 5354382-7 (Version None)
Quarter: 2007Q2

REPORT INFORMATION
  Report Type: 
  Country: None (occurrence: None)
  Receive Date: 20070612
  Receipt Date: 20070530
  Transmission Date: 20071010
  Serious: Yes (Other)
  Sender: FDA-Public Use
  Company Number: US-JNJFOC-20070600451

PATIENT
  Age: 38 Year
  Sex: Female
  Weight: 75.75 kg

DRUGS (2)
  1. DURAGESIC-100 [Suspect]
     Indication: NEUROPATHY
     Dosage: 6-8 MONTHS
     Route: 062
  2. LEVOTHYROXINE SODIUM [Concomitant]
     Indication: HYPOTHYROIDISM
     Route: 048

REACTIONS (2)
  - ABORTION SPONTANEOUS [None]
  - DRUG EXPOSURE DURING PREGNANCY [None]
